FAERS Safety Report 17389809 (Version 1)
Quarter: 2020Q1

REPORT INFORMATION
  Report Type: Spontaneous
  Country: US (occurrence: US)
  Receive Date: 20200123
  Receipt Date: 20200123
  Transmission Date: 20200409
  Serious: Yes (Hospitalization)
  Sender: FDA-Public Use
  Company Number: None

PATIENT
  Age: 93 Year
  Sex: Male

DRUGS (18)
  1. METOPROLOL. [Concomitant]
     Active Substance: METOPROLOL
  2. VITAMIN D [Concomitant]
     Active Substance: VITAMIN D NOS
  3. CLOPIDOGREL [Concomitant]
     Active Substance: CLOPIDOGREL BISULFATE
  4. VITAMIN B12 [Concomitant]
     Active Substance: CYANOCOBALAMIN
  5. TRELSTAR [Concomitant]
     Active Substance: TRIPTORELIN PAMOATE
  6. ASPIRIN. [Concomitant]
     Active Substance: ASPIRIN
  7. TAMSULOISIN [Concomitant]
  8. XOPENEX [Concomitant]
     Active Substance: LEVALBUTEROL HYDROCHLORIDE
  9. AMIODARONE [Concomitant]
     Active Substance: AMIODARONE
  10. LEVOTHYROXINE. [Concomitant]
     Active Substance: LEVOTHYROXINE
  11. GABAPENTIN. [Concomitant]
     Active Substance: GABAPENTIN
  12. AIRBORNE [Concomitant]
     Active Substance: HERBALS\MINERALS\VITAMINS
  13. PRAVASTATIN. [Concomitant]
     Active Substance: PRAVASTATIN
  14. LACTULOSE. [Concomitant]
     Active Substance: LACTULOSE
  15. FLONASE [Concomitant]
     Active Substance: FLUTICASONE PROPIONATE
  16. CITALOPRAM [Concomitant]
     Active Substance: CITALOPRAM HYDROBROMIDE
  17. ERLEADA [Suspect]
     Active Substance: APALUTAMIDE
     Indication: PROSTATE CANCER
     Route: 048
  18. LOSARTAN. [Concomitant]
     Active Substance: LOSARTAN

REACTIONS (1)
  - Myocardial infarction [None]

NARRATIVE: CASE EVENT DATE: 20200122
